FAERS Safety Report 23745643 (Version 1)
Quarter: 2024Q2

REPORT INFORMATION
  Report Type: Spontaneous
  Country: GB (occurrence: GB)
  Receive Date: 20240416
  Receipt Date: 20240416
  Transmission Date: 20240716
  Serious: No
  Sender: FDA-Public Use
  Company Number: None

PATIENT
  Age: 24 Year
  Sex: Female

DRUGS (22)
  1. ARIPIPRAZOLE [Suspect]
     Active Substance: ARIPIPRAZOLE
     Indication: Bipolar disorder
     Dosage: 10 MILLIGRAM (TABLET)
     Route: 048
  2. ARIPIPRAZOLE [Suspect]
     Active Substance: ARIPIPRAZOLE
     Dosage: 15 MILLIGRAM, QD (TABLET)
     Route: 065
  3. ARIPIPRAZOLE [Suspect]
     Active Substance: ARIPIPRAZOLE
     Dosage: 5 MILLIGRAM (TABLET)
     Route: 065
  4. ARIPIPRAZOLE [Suspect]
     Active Substance: ARIPIPRAZOLE
     Dosage: 400 MILLIGRAM
     Route: 065
  5. ARIPIPRAZOLE [Suspect]
     Active Substance: ARIPIPRAZOLE
     Dosage: 5 MILLIGRAM (TABLET)
     Route: 048
  6. ARIPIPRAZOLE [Suspect]
     Active Substance: ARIPIPRAZOLE
     Dosage: 10 MILLIGRAM (TABLET)
     Route: 065
  7. ZUCLOPENTHIXOL ACETATE [Concomitant]
     Active Substance: ZUCLOPENTHIXOL ACETATE
     Indication: Product used for unknown indication
     Dosage: 100 MILLIGRAM
     Route: 030
     Dates: start: 20210505
  8. FLUPENTIXOL [Concomitant]
     Active Substance: FLUPENTIXOL
     Indication: Product used for unknown indication
     Dosage: 120 MILLIGRAM (SWITCHED TO 120 MG MONTHLY)
     Route: 065
  9. FLUPENTIXOL [Concomitant]
     Active Substance: FLUPENTIXOL
     Dosage: 60 MILLIGRAM (FORT NIGHTLY)
     Route: 065
  10. HALOPERIDOL [Concomitant]
     Active Substance: HALOPERIDOL
     Indication: Product used for unknown indication
     Dosage: 5 MILLIGRAM, TID
     Route: 065
  11. LAMOTRIGINE [Concomitant]
     Active Substance: LAMOTRIGINE
     Indication: Product used for unknown indication
     Dosage: 25 MILLIGRAM
     Route: 065
  12. LAMOTRIGINE [Concomitant]
     Active Substance: LAMOTRIGINE
     Dosage: 75 MILLIGRAM
     Route: 065
  13. LAMOTRIGINE [Concomitant]
     Active Substance: LAMOTRIGINE
     Dosage: 100 MILLIGRAM
     Route: 065
  14. LAMOTRIGINE [Concomitant]
     Active Substance: LAMOTRIGINE
     Dosage: 50 MILLIGRAM
     Route: 065
  15. OLANZAPINE [Concomitant]
     Active Substance: OLANZAPINE
     Indication: Product used for unknown indication
     Dosage: 15 MILLIGRAM
     Route: 065
  16. QUETIAPINE [Concomitant]
     Active Substance: QUETIAPINE
     Indication: Product used for unknown indication
     Dosage: UNK
     Route: 065
  17. RISPERIDONE [Concomitant]
     Active Substance: RISPERIDONE
     Indication: Product used for unknown indication
     Dosage: 0.5 MILLIGRAM, BID
     Route: 065
  18. RISPERIDONE [Concomitant]
     Active Substance: RISPERIDONE
     Dosage: 2 MILLIGRAM
     Route: 065
  19. RISPERIDONE [Concomitant]
     Active Substance: RISPERIDONE
     Dosage: 4 MILLIGRAM
     Route: 065
  20. RISPERIDONE [Concomitant]
     Active Substance: RISPERIDONE
     Dosage: 2 MILLIGRAM, BID
     Route: 065
  21. SERTRALINE [Concomitant]
     Active Substance: SERTRALINE HYDROCHLORIDE
     Indication: Product used for unknown indication
     Dosage: 100 MILLIGRAM
     Route: 065
  22. SERTRALINE [Concomitant]
     Active Substance: SERTRALINE HYDROCHLORIDE
     Dosage: 150 MILLIGRAM
     Route: 065
     Dates: start: 20180522

REACTIONS (7)
  - Anxiety [Unknown]
  - Weight increased [Unknown]
  - Confusional state [Recovered/Resolved]
  - Feeling abnormal [Recovered/Resolved]
  - Therapy interrupted [Unknown]
  - Product dose omission issue [Unknown]
  - Drug ineffective [Unknown]

NARRATIVE: CASE EVENT DATE: 20170301
